FAERS Safety Report 5892621-4 (Version None)
Quarter: 2008Q3

REPORT INFORMATION
  Report Type: 
  Country: None (occurrence: None)
  Receive Date: 20080923
  Receipt Date: 20080624
  Transmission Date: 20090109
  Serious: Yes (Hospitalization, Other)
  Sender: FDA-Public Use
  Company Number: FR-NOVOPROD-261793

PATIENT
  Age: 32 Year
  Sex: Female
  Weight: 63 kg

DRUGS (8)
  1. NORDITROPIN [Suspect]
     Indication: GROWTH HORMONE DEFICIENCY
     Dosage: 1 MG, QD
     Route: 058
     Dates: start: 20060602
  2. MINIRIN [Concomitant]
     Dosage: .6 MG, QD
     Route: 048
     Dates: start: 20050407
  3. HYDROCORTISONE [Concomitant]
     Dosage: 15 MG, QD
     Route: 048
     Dates: start: 20050407
  4. LEVOTHYROX [Concomitant]
     Indication: BLOOD THYROID STIMULATING HORMONE DECREASED
     Dosage: 50 UG, QD
     Route: 048
     Dates: start: 20040915, end: 20070206
  5. LEVOTHYROX [Concomitant]
     Dosage: 75 UG, QD
     Route: 048
     Dates: start: 20070207
  6. PARACETAMOL COMP. [Concomitant]
     Dosage: 1 INTAKE, PRN
     Route: 048
  7. TRAMADOL HCL [Concomitant]
     Dosage: 1 INTAKE DAILY, PRN
     Route: 048
     Dates: start: 20070314, end: 20070101
  8. ZOMIGORO [Concomitant]
     Dosage: 1 INTAKE, PRN
     Dates: start: 20070524

REACTIONS (2)
  - DISEASE RECURRENCE [None]
  - RATHKE'S CLEFT CYST [None]
